FAERS Safety Report 23974862 (Version 12)
Quarter: 2025Q1

REPORT INFORMATION
  Report Type: Spontaneous
  Country: CA (occurrence: CA)
  Receive Date: 20240614
  Receipt Date: 20250318
  Transmission Date: 20250409
  Serious: Yes (Hospitalization, Other)
  Sender: CELLTRION
  Company Number: CA-CELLTRION INC.-2024CA014039

PATIENT

DRUGS (12)
  1. INFLECTRA [Suspect]
     Active Substance: INFLIXIMAB-DYYB
     Indication: Crohn^s disease
     Route: 042
     Dates: start: 20240326, end: 2024
  2. INFLECTRA [Suspect]
     Active Substance: INFLIXIMAB-DYYB
     Route: 042
     Dates: start: 20240508
  3. INFLECTRA [Suspect]
     Active Substance: INFLIXIMAB-DYYB
     Route: 042
     Dates: start: 20240830
  4. INFLECTRA [Suspect]
     Active Substance: INFLIXIMAB-DYYB
     Route: 042
     Dates: start: 2024
  5. INFLECTRA [Suspect]
     Active Substance: INFLIXIMAB-DYYB
     Route: 042
     Dates: start: 20241023
  6. INFLECTRA [Suspect]
     Active Substance: INFLIXIMAB-DYYB
     Route: 042
     Dates: start: 20241023
  7. AZATHIOPRINE [Concomitant]
     Active Substance: AZATHIOPRINE
     Dates: start: 2021
  8. MORPHINE [Concomitant]
     Active Substance: MORPHINE
     Route: 048
     Dates: start: 2024
  9. PANTOPRAZOLE [Concomitant]
     Active Substance: PANTOPRAZOLE
     Indication: Dyspepsia
  10. PREDNISONE [Concomitant]
     Active Substance: PREDNISONE
     Dates: start: 20240215
  11. PREDNISONE [Concomitant]
     Active Substance: PREDNISONE
     Dates: start: 202409
  12. PREDNISONE [Concomitant]
     Active Substance: PREDNISONE
     Dates: start: 202409

REACTIONS (12)
  - Small intestinal obstruction [Recovered/Resolved]
  - Disease recurrence [Recovered/Resolved]
  - Intestinal perforation [Not Recovered/Not Resolved]
  - Intestinal fistula [Unknown]
  - Condition aggravated [Recovering/Resolving]
  - Dental operation [Unknown]
  - Drug level below therapeutic [Unknown]
  - Infection [Unknown]
  - Back pain [Unknown]
  - Osteoporosis [Unknown]
  - Abnormal faeces [Unknown]
  - Vomiting [Unknown]

NARRATIVE: CASE EVENT DATE: 20240101
